FAERS Safety Report 5092024-9 (Version None)
Quarter: 2006Q3

REPORT INFORMATION
  Report Type: 
  Country: None (occurrence: None)
  Receive Date: 20060825
  Receipt Date: 20060809
  Transmission Date: 20061208
  Serious: Yes (Death)
  Sender: FDA-Public Use
  Company Number: 0610019

PATIENT
  Age: 3 Year
  Sex: Male
  Weight: 14 kg

DRUGS (1)
  1. NITISINONE [Suspect]
     Indication: TYROSINAEMIA
     Dosage: 15 MG/DAY A DAY ORAL
     Route: 048
     Dates: start: 20041012, end: 20041219

REACTIONS (1)
  - COMA HEPATIC [None]
